FAERS Safety Report 24428644 (Version 2)
Quarter: 2025Q4

REPORT INFORMATION
  Report Type: Spontaneous
  Country: EU (occurrence: EU)
  Receive Date: 20241011
  Receipt Date: 20251003
  Transmission Date: 20260118
  Serious: Yes (Death, Hospitalization, Other)
  Sender: GALDERMA
  Company Number: EU-GALDERMA-FR2024014919

PATIENT

DRUGS (3)
  1. CLOBETASOL PROPIONATE [Suspect]
     Active Substance: CLOBETASOL PROPIONATE
     Indication: Pemphigoid
     Dosage: 30 GRAM PER DAY
     Route: 061
  2. CLOBETASOL PROPIONATE [Suspect]
     Active Substance: CLOBETASOL PROPIONATE
     Dosage: TAPERED TO A DOSE LOWER THAN 10 GRAM PER DAY
     Route: 061
  3. MYCOPHENOLATE MOFETIL [Concomitant]
     Active Substance: MYCOPHENOLATE MOFETIL
     Indication: Pemphigoid
     Dosage: 1 GRAM, TWICE DAILY STARTED AT MONTH 08
     Route: 061

REACTIONS (14)
  - Septic shock [Fatal]
  - Necrotising fasciitis [Fatal]
  - Streptococcal infection [Unknown]
  - Diabetes mellitus [Unknown]
  - Rebound effect [Unknown]
  - Pemphigoid [Unknown]
  - Staphylococcal infection [Unknown]
  - White blood cell count increased [Unknown]
  - Neutrophil count increased [Unknown]
  - C-reactive protein increased [Unknown]
  - Beta haemolytic streptococcal infection [Unknown]
  - Therapeutic product effect incomplete [Unknown]
  - Intentional product use issue [Recovered/Resolved]
  - Intentional product misuse [Recovered/Resolved]
